FAERS Safety Report 5444923-3 (Version None)
Quarter: 2007Q3

REPORT INFORMATION
  Report Type: 
  Country: None (occurrence: None)
  Receive Date: 20070906
  Receipt Date: 20070830
  Transmission Date: 20080115
  Serious: Yes (Other)
  Sender: FDA-Public Use
  Company Number: B0483601A

PATIENT
  Sex: Female

DRUGS (3)
  1. AVANDIA [Suspect]
     Dates: start: 20061001, end: 20070701
  2. SULPHONYLUREA [Concomitant]
     Dates: start: 20061001
  3. METFORMIN HCL [Concomitant]
     Dates: start: 20061001

REACTIONS (4)
  - BONE DENSITY DECREASED [None]
  - HUMERUS FRACTURE [None]
  - VITAMIN D DECREASED [None]
  - WRIST FRACTURE [None]
